FAERS Safety Report 8205936-1 (Version None)
Quarter: 2012Q1

REPORT INFORMATION
  Report Type: 
  Country: None (occurrence: None)
  Receive Date: 20120313
  Receipt Date: 20120307
  Transmission Date: 20120608
  Serious: Yes (Death, Life-Threatening, Hospitalization)
  Sender: FDA-Public Use
  Company Number: US-CELGENEUS-163-21880-12010680

PATIENT
  Sex: Male

DRUGS (9)
  1. REVLIMID [Suspect]
     Dosage: 10 MILLIGRAM
     Route: 048
     Dates: start: 20111213, end: 20120112
  2. TAMSULOSIN HCL [Concomitant]
     Route: 065
  3. ATENOLOL [Concomitant]
     Dosage: 50 MILLIGRAM
     Route: 048
     Dates: start: 20120112
  4. HYDROCODONE BITARTRATE AND ACETAMINOPHEN [Concomitant]
     Dosage: 5/325
     Route: 048
     Dates: start: 20120112
  5. GLIPIZIDE [Concomitant]
     Route: 065
  6. BACTRIM [Concomitant]
     Dosage: 800/160
     Route: 048
     Dates: start: 20120112
  7. AVODART [Concomitant]
     Dosage: .5 MILLIGRAM
     Route: 048
     Dates: start: 20120112
  8. PROBENECID + COLCHICINE [Concomitant]
     Dosage: 0.5-500MG
     Route: 048
     Dates: start: 20120112
  9. FILGRASTIM [Concomitant]
     Route: 065

REACTIONS (3)
  - WHITE BLOOD CELL COUNT DECREASED [None]
  - MYELODYSPLASTIC SYNDROME [None]
  - ARTERIOVENOUS MALFORMATION [None]
